FAERS Safety Report 7367549-3 (Version None)
Quarter: 2011Q1

REPORT INFORMATION
  Report Type: 
  Country: None (occurrence: None)
  Receive Date: 20110322
  Receipt Date: 20110316
  Transmission Date: 20110831
  Serious: Yes (Other)
  Sender: FDA-Public Use
  Company Number: US-AMGEN-USASP2011014631

PATIENT

DRUGS (2)
  1. PROCRIT [Suspect]
     Indication: ANAEMIA
     Dosage: 10000 IU, 3 TIMES/WK
  2. ARANESP [Suspect]
     Indication: ACCIDENTAL EXPOSURE
     Dosage: 200 A?G, UNK
     Dates: start: 20110316, end: 20110316

REACTIONS (1)
  - WRONG DRUG ADMINISTERED [None]
